FAERS Safety Report 10890018 (Version 5)
Quarter: 2015Q3

REPORT INFORMATION
  Report Type: Spontaneous
  Country: AR (occurrence: AR)
  Receive Date: 20150305
  Receipt Date: 20150804
  Transmission Date: 20151125
  Serious: Yes (Other)
  Sender: FDA-Public Use
  Company Number: AR-AMGEN-ARGSP2015020113

PATIENT
  Age: 55 Year
  Sex: Female

DRUGS (1)
  1. ENBREL [Suspect]
     Active Substance: ETANERCEPT
     Indication: RHEUMATOID ARTHRITIS
     Dosage: 50 MG, WEEKLY
     Route: 065
     Dates: start: 20071010

REACTIONS (14)
  - Synovitis [Unknown]
  - Gait disturbance [Recovered/Resolved]
  - Abscess limb [Unknown]
  - Visual impairment [Unknown]
  - Infection [Not Recovered/Not Resolved]
  - Procedural complication [Not Recovered/Not Resolved]
  - Infection [Recovered/Resolved]
  - Alopecia [Unknown]
  - Decreased immune responsiveness [Recovered/Resolved]
  - Cyst [Not Recovered/Not Resolved]
  - Peripheral swelling [Recovered/Resolved]
  - Arthritis [Unknown]
  - Joint swelling [Recovered/Resolved]
  - Hyperkeratosis [Recovered/Resolved]

NARRATIVE: CASE EVENT DATE: 2013
